FAERS Safety Report 11844569 (Version 1)
Quarter: 2015Q4

REPORT INFORMATION
  Report Type: Spontaneous
  Country: JP (occurrence: JP)
  Receive Date: 20151217
  Receipt Date: 20151217
  Transmission Date: 20160305
  Serious: Yes (Hospitalization)
  Sender: FDA-Public Use
  Company Number: JP-CIPLA LTD.-2015JP09239

PATIENT

DRUGS (1)
  1. VALACYCLOVIR HYDROCHLORIDE. [Suspect]
     Active Substance: VALACYCLOVIR HYDROCHLORIDE
     Dosage: 300 MG/M2 PER DOSE 3 TIMES A DAY
     Route: 048

REACTIONS (4)
  - Pyrexia [Unknown]
  - Vomiting [Unknown]
  - Disease recurrence [Unknown]
  - Developmental delay [Unknown]
